FAERS Safety Report 23735027 (Version 1)
Quarter: 2024Q2

REPORT INFORMATION
  Report Type: Other
  Country: US (occurrence: None)
  Receive Date: 20240412
  Receipt Date: 20240412
  Transmission Date: 20240716
  Serious: Yes (Other)
  Sender: FDA-Public Use
  Company Number: US-ROCHE-3540742

PATIENT
  Age: 32 Year
  Sex: Female
  Weight: 90.719 kg

DRUGS (9)
  1. XOLAIR [Suspect]
     Active Substance: OMALIZUMAB
     Indication: Product used for unknown indication
     Route: 065
  2. ZOFRAN [Suspect]
     Active Substance: ONDANSETRON HYDROCHLORIDE
     Indication: Product used for unknown indication
     Route: 065
  3. AMITRIPTYLINE [Suspect]
     Active Substance: AMITRIPTYLINE
     Indication: Product used for unknown indication
     Route: 065
  4. AMANTADINE [Concomitant]
     Active Substance: AMANTADINE
  5. ZOFRAN [Concomitant]
     Active Substance: ONDANSETRON HYDROCHLORIDE
  6. EFFEXOR [Concomitant]
     Active Substance: VENLAFAXINE HYDROCHLORIDE
  7. ERGOCALCIFEROL [Concomitant]
     Active Substance: ERGOCALCIFEROL
  8. LYRICA [Concomitant]
     Active Substance: PREGABALIN
  9. PRAZOSIN [Concomitant]
     Active Substance: PRAZOSIN

REACTIONS (5)
  - Rash erythematous [Unknown]
  - Urticaria [Unknown]
  - Brain injury [Unknown]
  - Night sweats [Unknown]
  - Mobility decreased [Unknown]
